FAERS Safety Report 18324075 (Version 1)
Quarter: 2020Q3

REPORT INFORMATION
  Report Type: Spontaneous
  Country: JP (occurrence: JP)
  Receive Date: 20200929
  Receipt Date: 20200929
  Transmission Date: 20201103
  Serious: Yes (Other)
  Sender: FDA-Public Use
  Company Number: JP-TEVA-2020-JP-1834663

PATIENT
  Age: 9 Decade
  Sex: Female

DRUGS (3)
  1. AZILECT [Suspect]
     Active Substance: RASAGILINE MESYLATE
     Dosage: .5 MILLIGRAM DAILY;
     Route: 048
     Dates: start: 202009
  2. LEVODOPA [Concomitant]
     Active Substance: LEVODOPA
  3. AZILECT [Suspect]
     Active Substance: RASAGILINE MESYLATE
     Indication: PARKINSON^S DISEASE
     Dosage: 1 MILLIGRAM DAILY;
     Route: 048
     Dates: start: 201906

REACTIONS (3)
  - Condition aggravated [Unknown]
  - Orthostatic hypotension [Recovered/Resolved]
  - Autonomic neuropathy [Unknown]

NARRATIVE: CASE EVENT DATE: 202009
